FAERS Safety Report 16939585 (Version 2)
Quarter: 2019Q4

REPORT INFORMATION
  Report Type: Report from Study
  Country: IT (occurrence: IT)
  Receive Date: 20191021
  Receipt Date: 20191023
  Transmission Date: 20200122
  Serious: Yes (Other)
  Sender: FDA-Public Use
  Company Number: IT-TEVA-2019-IT-1123579

PATIENT
  Age: 85 Year
  Sex: Female

DRUGS (7)
  1. RAMIPRIL. [Concomitant]
     Active Substance: RAMIPRIL
     Dosage: 2.5 MILLIGRAM PER DAY
  2. RAMIPRIL/IDROCLOROTIAZIDE [Concomitant]
     Active Substance: HYDROCHLOROTHIAZIDE\RAMIPRIL
     Dosage: 2.5 DOSAGE FORM PER DAY
  3. METFORMIN [Suspect]
     Active Substance: METFORMIN HYDROCHLORIDE
     Indication: DIABETES MELLITUS
     Dosage: 2.4 GRAM PER DAY
     Route: 048
     Dates: start: 20180615, end: 20190615
  4. EUTIROX 25 MICROGRAMMI COMPRESSE [Concomitant]
     Active Substance: LEVOTHYROXINE SODIUM
  5. GLICLAZIDE [Suspect]
     Active Substance: GLICLAZIDE
     Indication: DIABETES MELLITUS
     Dosage: 240 MILLIGRAM PER DAY
     Route: 048
     Dates: start: 20180615, end: 20190615
  6. GLUCOBAY [Suspect]
     Active Substance: ACARBOSE
     Indication: DIABETES MELLITUS
     Dosage: 300 MILLIGRAM PER DAY
     Route: 048
     Dates: start: 20180615, end: 20190615
  7. EBASTINE [Concomitant]
     Active Substance: EBASTINE
     Dosage: 10 MILLIGRAM AS REQUIRED

REACTIONS (2)
  - Hypoglycaemia [Recovering/Resolving]
  - Dysarthria [Recovering/Resolving]

NARRATIVE: CASE EVENT DATE: 20190615
